FAERS Safety Report 8977649 (Version 1)
Quarter: 2012Q4

REPORT INFORMATION
  Report Type: 
  Country: GB (occurrence: GB)
  Receive Date: 20121219
  Receipt Date: 20121219
  Transmission Date: 20130627
  Serious: Yes (Hospitalization)
  Sender: FDA-Public Use
  Company Number: GB-EISAI INC-E7389-03364-SPO-GB

PATIENT
  Age: 58 Year
  Sex: Female

DRUGS (1)
  1. HALAVEN [Suspect]
     Dosage: UNKNOWN
     Route: 041
     Dates: start: 201203, end: 201209

REACTIONS (6)
  - Fall [Unknown]
  - Tumour pain [Recovering/Resolving]
  - Vein pain [Unknown]
  - Lethargy [Unknown]
  - Neuropathy peripheral [Unknown]
  - Alopecia [Unknown]
